FAERS Safety Report 8180395-6 (Version None)
Quarter: 2012Q1

REPORT INFORMATION
  Report Type: 
  Country: None (occurrence: None)
  Receive Date: 20120229
  Receipt Date: 20120220
  Transmission Date: 20120608
  Serious: Yes (Other)
  Sender: FDA-Public Use
  Company Number: 2011SP043585

PATIENT
  Age: 42 Year
  Sex: Female
  Weight: 44.6 kg

DRUGS (12)
  1. EURAX [Concomitant]
  2. MEFENAMIC ACID [Concomitant]
  3. TOLEDOMIN [Concomitant]
  4. ZOMIG [Concomitant]
  5. REBETOL [Suspect]
     Indication: HEPATITIS C
     Dosage: 600 MG;QD;PO
     Route: 048
     Dates: start: 20100901, end: 20110214
  6. LOXONIN (LOXOPROFEN SODIUM HYDRATE) [Concomitant]
  7. INTERFERON BETA NOS [Suspect]
     Indication: HEPATITIS C
     Dosage: 3 MIU;BID;IV 6 MIU;TIW;IV
     Route: 042
     Dates: start: 20100916, end: 20110214
  8. INTERFERON BETA NOS [Suspect]
     Indication: HEPATITIS C
     Dosage: 3 MIU;BID;IV 6 MIU;TIW;IV
     Route: 042
     Dates: start: 20100901, end: 20100914
  9. GASMOTIN (MOSAPRIDE CITRATE HYDRATE) [Concomitant]
  10. RABEPRAZOLE SODIUM [Concomitant]
  11. ROHYPNOL [Concomitant]
  12. ZOLPIDEM [Concomitant]

REACTIONS (1)
  - NEPHROTIC SYNDROME [None]
